FAERS Safety Report 20857779 (Version 3)
Quarter: 2022Q2

REPORT INFORMATION
  Report Type: Spontaneous
  Country: US (occurrence: US)
  Receive Date: 20220521
  Receipt Date: 20220603
  Transmission Date: 20220721
  Serious: No
  Sender: FDA-Public Use
  Company Number: US-UNITED THERAPEUTICS-UNT-2022-010756

PATIENT
  Age: 65 Year
  Sex: Female

DRUGS (2)
  1. REMODULIN [Suspect]
     Active Substance: TREPROSTINIL
     Indication: Pulmonary arterial hypertension
     Dosage: UNK UNK, CONTINUING
     Route: 041
     Dates: start: 20220509
  2. REMODULIN [Suspect]
     Active Substance: TREPROSTINIL
     Dosage: 0.018 ?G/KG, CONTINUING
     Route: 041
     Dates: start: 202205

REACTIONS (8)
  - Oedema peripheral [Unknown]
  - Flatulence [Unknown]
  - Decreased appetite [Unknown]
  - Abdominal pain [Unknown]
  - Pain in extremity [Unknown]
  - Device issue [Recovered/Resolved]
  - Device alarm issue [Recovered/Resolved]
  - Product administration interrupted [Recovered/Resolved]

NARRATIVE: CASE EVENT DATE: 20220501
